FAERS Safety Report 5075329-7 (Version None)
Quarter: 2006Q3

REPORT INFORMATION
  Report Type: 
  Country: None (occurrence: None)
  Receive Date: 20060804
  Receipt Date: 20060725
  Transmission Date: 20061208
  Serious: Yes (Other)
  Sender: FDA-Public Use
  Company Number: 2006091441

PATIENT
  Age: 69 Year
  Sex: Female

DRUGS (4)
  1. ZOLOFT [Suspect]
     Indication: AFFECTIVE DISORDER
     Dosage: 50 MG (50 MG, 1 IN 1 D), ORAL
     Route: 048
     Dates: start: 20021201, end: 20050801
  2. THYRAX (LEVOTHYROXINE) [Concomitant]
  3. LEVOTHYROXINE SODIUM [Concomitant]
  4. HYDROCOBAMINE (HYDROXOCOBALAMIN HYDROCHLORIDE) [Concomitant]

REACTIONS (9)
  - ASTHENIA [None]
  - FATIGUE [None]
  - GAIT DISTURBANCE [None]
  - LEUKOCYTOSIS [None]
  - MYOCLONUS [None]
  - NAUSEA [None]
  - NEUROMYOPATHY [None]
  - RED BLOOD CELL SEDIMENTATION RATE INCREASED [None]
  - SENSORY DISTURBANCE [None]
